FAERS Safety Report 17812152 (Version 1)
Quarter: 2020Q2

REPORT INFORMATION
  Report Type: Spontaneous
  Country: FR (occurrence: FR)
  Receive Date: 20200521
  Receipt Date: 20200521
  Transmission Date: 20200714
  Serious: Yes (Other)
  Sender: FDA-Public Use
  Company Number: FR-MYLANLABS-2020M1049070

PATIENT
  Age: 41 Year
  Sex: Male

DRUGS (5)
  1. MEROPENEM PANPHARMA [Suspect]
     Active Substance: MEROPENEM
     Indication: BACTERIAL INFECTION
     Dosage: 8 GRAM, QD
     Route: 042
     Dates: start: 20200320, end: 20200323
  2. VANCOMYCIN MYLAN [Suspect]
     Active Substance: VANCOMYCIN
     Indication: BACTERIAL INFECTION
     Dosage: 1000 MILLIGRAM, QD
     Route: 042
     Dates: start: 20200321, end: 20200323
  3. MEROPENEM PANPHARMA [Suspect]
     Active Substance: MEROPENEM
     Dosage: 6 GRAM, QD
     Route: 042
     Dates: start: 20200323, end: 20200324
  4. VANCOMYCIN MYLAN [Suspect]
     Active Substance: VANCOMYCIN
     Dosage: 3000 MILLIGRAM, QD
     Route: 042
     Dates: start: 20200324, end: 20200324
  5. ZYVOXID [Concomitant]
     Active Substance: LINEZOLID
     Indication: BACTERIAL INFECTION
     Dosage: 1200 MILLIGRAM, QD
     Route: 048
     Dates: start: 20200324, end: 20200420

REACTIONS (1)
  - Anaemia [Not Recovered/Not Resolved]

NARRATIVE: CASE EVENT DATE: 20200323
